FAERS Safety Report 24453655 (Version 2)
Quarter: 2024Q4

REPORT INFORMATION
  Report Type: Report from Study
  Country: US (occurrence: US)
  Receive Date: 20241017
  Receipt Date: 20241018
  Transmission Date: 20250114
  Serious: No
  Sender: ROCHE
  Company Number: US-ROCHE-3387932

PATIENT
  Age: 75 Year
  Sex: Female

DRUGS (21)
  1. RITUXAN [Suspect]
     Active Substance: RITUXIMAB
     Indication: Rheumatoid arthritis
     Dosage: 500MG/50 ML, ANTICIPATED DATE OF TREATMENT: 8/23/23
     Route: 042
  2. RITUXAN [Suspect]
     Active Substance: RITUXIMAB
     Indication: Rheumatoid arthritis
  3. ACTEMRA [Suspect]
     Active Substance: TOCILIZUMAB
     Indication: Rheumatoid arthritis
     Route: 058
  4. ACTEMRA [Suspect]
     Active Substance: TOCILIZUMAB
     Indication: Rheumatoid arthritis
  5. CELEBREX [Concomitant]
     Active Substance: CELECOXIB
     Route: 048
  6. HYDROXYCHLOROQUINE SULFATE [Concomitant]
     Active Substance: HYDROXYCHLOROQUINE SULFATE
     Route: 048
  7. MONTELUKAST [Concomitant]
     Active Substance: MONTELUKAST
  8. PLAQUENIL [Concomitant]
     Active Substance: HYDROXYCHLOROQUINE SULFATE
  9. PREDNISONE [Concomitant]
     Active Substance: PREDNISONE
  10. LIOTHYRONINE [Concomitant]
     Active Substance: LIOTHYRONINE
  11. LEVOTHYROXINE [Concomitant]
     Active Substance: LEVOTHYROXINE
  12. DEXILANT [Concomitant]
     Active Substance: DEXLANSOPRAZOLE
  13. ESTRADIOL [Concomitant]
     Active Substance: ESTRADIOL
  14. IPRATROPIUM [Concomitant]
     Active Substance: IPRATROPIUM
  15. LACTULOSE [Concomitant]
     Active Substance: LACTULOSE
  16. METOPROLOL [Concomitant]
     Active Substance: METOPROLOL
  17. TYLENOL [Concomitant]
     Active Substance: ACETAMINOPHEN
  18. BIOTIN [Concomitant]
     Active Substance: BIOTIN
  19. VITAMINS [Concomitant]
     Active Substance: VITAMINS
  20. FOLATE SODIUM [Concomitant]
     Active Substance: FOLATE SODIUM
  21. ERGOCALCIFEROL [Concomitant]
     Active Substance: ERGOCALCIFEROL

REACTIONS (4)
  - Thyroid hormones increased [Unknown]
  - Hypertension [Unknown]
  - Tachycardia [Unknown]
  - Off label use [Unknown]
